FAERS Safety Report 8862931 (Version 1)
Quarter: 2012Q4

REPORT INFORMATION
  Report Type: 
  Country: CA (occurrence: CA)
  Receive Date: 20121026
  Receipt Date: 20121026
  Transmission Date: 20130627
  Serious: Yes (Hospitalization)
  Sender: FDA-Public Use
  Company Number: PHHO2012CA015117

PATIENT
  Age: 65 Year
  Sex: Female

DRUGS (9)
  1. MULTIVITAMINS [Concomitant]
     Dosage: UNK
     Dates: start: 201206
  2. MOMETASONE FUROATE [Concomitant]
     Dosage: UNK
     Dates: start: 20120727
  3. CLONIDINE [Concomitant]
     Dosage: UNK
     Dates: start: 20120801, end: 20120803
  4. CIPROFLOXACIN [Concomitant]
     Dosage: UNK
     Dates: start: 20010727, end: 20120730
  5. DIOVAN HCT [Suspect]
     Indication: HYPERTENSION
     Dosage: 1 DF, (80mg/125mg)
     Route: 048
     Dates: start: 20120301, end: 20120801
  6. SUTENT [Concomitant]
     Indication: METASTATIC RENAL CELL CARCINOMA
     Dosage: 50 mg, 1xday
     Route: 048
     Dates: start: 20120615, end: 20120801
  7. ALENDRONATE SODIUM [Concomitant]
     Dosage: UNK
     Dates: start: 20110729
  8. CALCIUM CARBONATE W/VITAMIN D NOS [Concomitant]
     Dosage: UNK
     Dates: start: 20110729
  9. UREMOL [Concomitant]
     Dosage: UNK
     Dates: start: 20120614

REACTIONS (2)
  - Anaemia [Recovered/Resolved]
  - Hyponatraemia [Recovered/Resolved]
